FAERS Safety Report 4733640-0 (Version None)
Quarter: 2005Q3

REPORT INFORMATION
  Report Type: 
  Country: None (occurrence: None)
  Receive Date: 20050729
  Receipt Date: 20050621
  Transmission Date: 20060218
  Serious: No
  Sender: FDA-Public Use
  Company Number: COT_0111_2005

PATIENT
  Age: 50 Year
  Sex: Female
  Weight: 93 kg

DRUGS (26)
  1. VENTAVIS [Suspect]
     Indication: PULMONARY HYPERTENSION
     Dosage: 5 MCG Q4HR IH
     Route: 055
  2. VENTAVIS [Suspect]
     Indication: PULMONARY HYPERTENSION
     Dosage: 2.5 MCG Q4HR IH
     Route: 055
  3. NORVASC [Concomitant]
  4. ASPIRIN [Concomitant]
  5. ADVICOR [Concomitant]
  6. LANTUS [Concomitant]
  7. NOVOLOG [Concomitant]
  8. METFORMIN [Concomitant]
  9. ATIVAN [Concomitant]
  10. PREVACID [Concomitant]
  11. MEDROL [Concomitant]
  12. LASIX [Concomitant]
  13. SPIRONOLACTONE [Concomitant]
  14. PLAQUENIL [Concomitant]
  15. POTASSIUM CHLORIDE [Concomitant]
  16. CALTRATE [Concomitant]
  17. VIAGRA [Concomitant]
  18. QUININE SULFATE [Concomitant]
  19. XOPENEX [Concomitant]
  20. ALBUTEROL [Concomitant]
  21. MOTRIN [Concomitant]
  22. ULTRAM [Concomitant]
  23. AMBIEN [Concomitant]
  24. FERROUS SULFATE TAB [Concomitant]
  25. FLOLAN [Concomitant]
  26. ASPIRIN [Concomitant]

REACTIONS (4)
  - DIZZINESS [None]
  - MIGRAINE [None]
  - NAUSEA [None]
  - VOMITING [None]
